FAERS Safety Report 8961514 (Version 2)
Quarter: 2013Q2

REPORT INFORMATION
  Report Type: Spontaneous
  Country: US (occurrence: US)
  Receive Date: 20121213
  Receipt Date: 20130430
  Transmission Date: 20140414
  Serious: Yes (Hospitalization)
  Sender: FDA-Public Use
  Company Number: US-BAYER-2012-129885

PATIENT
  Age: 24 Year
  Sex: Female
  Weight: 53.52 kg

DRUGS (3)
  1. YAZ [Suspect]
     Dosage: 1 TABLET, DAILY
     Route: 048
  2. PERCOCET [Concomitant]
     Indication: PAIN
     Dosage: 325 MG-5 MG, 1-2 TABS EVERY 4 TO 6 HOURS AS NEEDED
     Route: 048
  3. REGLAN [Concomitant]
     Indication: HEADACHE

REACTIONS (1)
  - Pulmonary embolism [Recovered/Resolved]
